FAERS Safety Report 5752364-4 (Version None)
Quarter: 2008Q2

REPORT INFORMATION
  Report Type: 
  Country: None (occurrence: None)
  Receive Date: 20080527
  Receipt Date: 20080516
  Transmission Date: 20081010
  Serious: Yes (Death, Hospitalization)
  Sender: FDA-Public Use
  Company Number: CLOF-1000175

PATIENT
  Age: 60 Year
  Sex: Female

DRUGS (3)
  1. CLOFARABINE (CLOFARABINE) SOLUTION FOR INFUSION [Suspect]
     Indication: STEM CELL TRANSPLANT
     Dosage: QDX5, INTRAVENOUS
     Route: 042
     Dates: start: 20080509, end: 20080513
  2. CAMPATH [Suspect]
     Indication: STEM CELL TRANSPLANT
     Dosage: QDX5, INTRAVENOUS
     Route: 042
     Dates: start: 20080509, end: 20080513
  3. MELPHALAN (MELPHALAN) [Suspect]
     Indication: STEM CELL TRANSPLANT
     Dosage: ONCE, INTRAVENOUS
     Route: 042
     Dates: start: 20080514, end: 20080514

REACTIONS (7)
  - ABDOMINAL PAIN [None]
  - ACUTE PULMONARY OEDEMA [None]
  - ASCITES [None]
  - BLOOD CREATININE INCREASED [None]
  - CARDIAC ARREST [None]
  - HYPERVOLAEMIA [None]
  - HYPOTENSION [None]
